FAERS Safety Report 18131266 (Version 1)
Quarter: 2020Q3

REPORT INFORMATION
  Report Type: Report from Study
  Country: US (occurrence: US)
  Receive Date: 20200810
  Receipt Date: 20200810
  Transmission Date: 20201103
  Serious: Yes (Hospitalization)
  Sender: FDA-Public Use
  Company Number: US-EISAI MEDICAL RESEARCH-EC-2020-070547

PATIENT
  Age: 59 Year
  Sex: Female
  Weight: 54 kg

DRUGS (15)
  1. LENVIMA [Suspect]
     Active Substance: LENVATINIB
     Indication: ENDOMETRIAL NEOPLASM
     Route: 048
     Dates: start: 20200129, end: 2020
  2. LENVIMA [Suspect]
     Active Substance: LENVATINIB
     Route: 048
     Dates: start: 2020, end: 2020
  3. LENVIMA [Suspect]
     Active Substance: LENVATINIB
     Route: 048
     Dates: start: 2020, end: 20200403
  4. LENVIMA [Suspect]
     Active Substance: LENVATINIB
     Route: 048
     Dates: start: 20200406, end: 202004
  5. LENVIMA [Suspect]
     Active Substance: LENVATINIB
     Route: 048
     Dates: start: 2020, end: 2020
  6. MULTIVITAMIN [Concomitant]
     Active Substance: VITAMINS
  7. LENVIMA [Suspect]
     Active Substance: LENVATINIB
     Dosage: ALTERNATING 4MG AND 8MG
     Route: 048
     Dates: start: 202004, end: 202005
  8. LENVIMA [Suspect]
     Active Substance: LENVATINIB
     Dosage: ALTERNATING 8MG AND 10MG
     Route: 048
     Dates: start: 2020, end: 2020
  9. CYMBALTA [Concomitant]
     Active Substance: DULOXETINE HYDROCHLORIDE
  10. LENVIMA [Suspect]
     Active Substance: LENVATINIB
     Route: 048
     Dates: start: 2020
  11. IMODIUM [Concomitant]
     Active Substance: LOPERAMIDE HYDROCHLORIDE
  12. KEYTRUDA [Concomitant]
     Active Substance: PEMBROLIZUMAB
  13. LENVIMA [Suspect]
     Active Substance: LENVATINIB
     Route: 048
     Dates: start: 2020, end: 2020
  14. LENVIMA [Suspect]
     Active Substance: LENVATINIB
     Route: 048
     Dates: start: 2020, end: 2020
  15. ZOFRAN [Concomitant]
     Active Substance: ONDANSETRON HYDROCHLORIDE

REACTIONS (19)
  - Headache [Unknown]
  - Upper-airway cough syndrome [Unknown]
  - Arthralgia [Recovering/Resolving]
  - Vomiting [Unknown]
  - Dyspepsia [Unknown]
  - Constipation [Unknown]
  - Diarrhoea [Unknown]
  - Nasopharyngitis [Unknown]
  - Dry throat [Unknown]
  - Dry eye [Unknown]
  - Myalgia [Recovering/Resolving]
  - Fatigue [Unknown]
  - Blood pressure increased [Unknown]
  - Rash [Recovered/Resolved]
  - Blood pressure fluctuation [Unknown]
  - Rhinorrhoea [Unknown]
  - Cough [Unknown]
  - Eye pruritus [Unknown]
  - Irritable bowel syndrome [Unknown]

NARRATIVE: CASE EVENT DATE: 2020
